FAERS Safety Report 16282509 (Version 3)
Quarter: 2020Q1

REPORT INFORMATION
  Report Type: Report from Study
  Country: CR (occurrence: CR)
  Receive Date: 20190507
  Receipt Date: 20200115
  Transmission Date: 20200409
  Serious: Yes (Other)
  Sender: FDA-Public Use
  Company Number: CR-SA-2019SA123341

PATIENT
  Age: 92 Year
  Sex: Female
  Weight: 63 kg

DRUGS (5)
  1. HYDROCHLOROTHIAZIDE/IRBESARTAN [Suspect]
     Active Substance: HYDROCHLOROTHIAZIDE\IRBESARTAN
     Dosage: 1 DF (300 MG OF IRBESARTAN + 25 MG OF HYDROCHLOROTHIAZIDE), QD
     Route: 048
     Dates: start: 20191216
  2. AMLODIPINE/IRBESARTAN [Suspect]
     Active Substance: AMLODIPINE BESYLATE\IRBESARTAN
     Indication: HYPERTENSION
     Dosage: 1 DF (300 MG OF IRBESARTAN + 5 MG OF AMLODIPINE), QD
     Route: 048
     Dates: start: 201910, end: 20191216
  3. HYDROCHLOROTHIAZIDE/IRBESARTAN [Suspect]
     Active Substance: HYDROCHLOROTHIAZIDE\IRBESARTAN
     Indication: HYPERTENSION
     Dosage: 1 DF, QD (1 ORAL TABLET OF 300 MG OF IRBESARTAN + 25 MG OF HYDROCHLOROTHIAZIDE EVERY 24 HOURS)
     Route: 048
     Dates: start: 201805
  4. IRBESARTAN. [Suspect]
     Active Substance: IRBESARTAN
     Indication: HYPERTENSION
     Dosage: 300 MG, QD
     Route: 048
     Dates: start: 201906, end: 201910
  5. HYDROCHLOROTHIAZIDE/IRBESARTAN [Suspect]
     Active Substance: HYDROCHLOROTHIAZIDE\IRBESARTAN
     Dosage: 1 DF (300 MG OF IRBESARTAN + 25 MG OF HYDROCHLOROTHIAZIDE), QD
     Route: 048
     Dates: start: 201904, end: 201906

REACTIONS (8)
  - Leukaemia [Recovered/Resolved]
  - Injury [Recovered/Resolved]
  - Hypotension [Recovered/Resolved]
  - Drug ineffective [Unknown]
  - Malaise [Recovered/Resolved]
  - Peripheral swelling [Recovered/Resolved]
  - Joint swelling [Recovered/Resolved]
  - Dizziness [Recovered/Resolved]

NARRATIVE: CASE EVENT DATE: 201910
